FAERS Safety Report 7561990-1 (Version None)
Quarter: 2011Q2

REPORT INFORMATION
  Report Type: 
  Country: None (occurrence: None)
  Receive Date: 20110621
  Receipt Date: 20110616
  Transmission Date: 20111010
  Serious: Yes (Death)
  Sender: FDA-Public Use
  Company Number: US-GILEAD-2011-0040370

PATIENT
  Sex: Female

DRUGS (2)
  1. EPOPROSTENOL SODIUM [Concomitant]
  2. LETAIRIS [Suspect]
     Indication: PRODUCT USED FOR UNKNOWN INDICATION
     Route: 048
     Dates: start: 20100101, end: 20110607

REACTIONS (4)
  - RENAL FAILURE [None]
  - CHRONIC HEPATIC FAILURE [None]
  - HEPATIC CIRRHOSIS [None]
  - HEPATORENAL SYNDROME [None]
